FAERS Safety Report 14705602 (Version 1)
Quarter: 2018Q2

REPORT INFORMATION
  Report Type: Spontaneous
  Country: US (occurrence: US)
  Receive Date: 20180402
  Receipt Date: 20180402
  Transmission Date: 20180711
  Serious: No
  Sender: FDA-Public Use
  Company Number: US-BAYER-2018-063083

PATIENT
  Age: 44 Year
  Sex: Male
  Weight: 79.37 kg

DRUGS (2)
  1. TUMS [Concomitant]
     Active Substance: CALCIUM CARBONATE
  2. ZEGERID OTC CAPSULES [Suspect]
     Active Substance: OMEPRAZOLE\SODIUM BICARBONATE
     Dosage: 1 DF, UNK
     Route: 048
     Dates: start: 201803, end: 201803

REACTIONS (1)
  - Gastric pH decreased [None]

NARRATIVE: CASE EVENT DATE: 201803
